FAERS Safety Report 13896275 (Version 4)
Quarter: 2017Q4

REPORT INFORMATION
  Report Type: Report from Study
  Country: US (occurrence: US)
  Receive Date: 20170823
  Receipt Date: 20171010
  Transmission Date: 20180320
  Serious: Yes (Hospitalization)
  Sender: FDA-Public Use
  Company Number: US-ACADIA PHARMACEUTICALS INC.-ACA-2017-005124

PATIENT
  Age: 71 Year
  Sex: Male

DRUGS (10)
  1. NUPLAZID [Suspect]
     Active Substance: PIMAVANSERIN TARTRATE
     Indication: HALLUCINATION
     Dosage: 34 MG, QD
     Route: 048
     Dates: start: 201708
  2. SINEMET [Concomitant]
     Active Substance: CARBIDOPA\LEVODOPA
     Indication: PRODUCT USED FOR UNKNOWN INDICATION
  3. DONEPEZIL. [Concomitant]
     Active Substance: DONEPEZIL
     Indication: PRODUCT USED FOR UNKNOWN INDICATION
  4. LEXAPRO [Concomitant]
     Active Substance: ESCITALOPRAM OXALATE
     Indication: PRODUCT USED FOR UNKNOWN INDICATION
  5. AMANTADINE. [Concomitant]
     Active Substance: AMANTADINE HYDROCHLORIDE
     Indication: PRODUCT USED FOR UNKNOWN INDICATION
     Dosage: UNK
     Dates: start: 20170501
  6. NUPLAZID [Suspect]
     Active Substance: PIMAVANSERIN TARTRATE
     Indication: PARKINSON^S DISEASE PSYCHOSIS
     Dosage: 34 MG, QD
     Route: 048
     Dates: start: 20170523, end: 20170714
  7. VESICARE [Concomitant]
     Active Substance: SOLIFENACIN SUCCINATE
     Indication: PRODUCT USED FOR UNKNOWN INDICATION
  8. NUPLAZID [Suspect]
     Active Substance: PIMAVANSERIN TARTRATE
     Indication: DELUSION
  9. AZILECT [Concomitant]
     Active Substance: RASAGILINE MESYLATE
     Indication: PRODUCT USED FOR UNKNOWN INDICATION
  10. ENTACAPONE. [Concomitant]
     Active Substance: ENTACAPONE
     Indication: PRODUCT USED FOR UNKNOWN INDICATION

REACTIONS (6)
  - Staring [Recovered/Resolved]
  - Catatonia [Recovered/Resolved]
  - Hallucination [Recovered/Resolved]
  - Neurotransmitter level altered [Recovered/Resolved]
  - Social avoidant behaviour [Recovered/Resolved]
  - Psychotic disorder [Recovered/Resolved]

NARRATIVE: CASE EVENT DATE: 20170522
